FAERS Safety Report 13631897 (Version 1)
Quarter: 2017Q2

REPORT INFORMATION
  Report Type: Spontaneous
  Country: PT (occurrence: PT)
  Receive Date: 20170608
  Receipt Date: 20170608
  Transmission Date: 20170830
  Serious: Yes (Hospitalization)
  Sender: FDA-Public Use
  Company Number: PHHY2017PT081382

PATIENT
  Age: 43 Year
  Sex: Female

DRUGS (1)
  1. GILENYA [Suspect]
     Active Substance: FINGOLIMOD HYDROCHLORIDE
     Indication: PRODUCT USED FOR UNKNOWN INDICATION
     Route: 065

REACTIONS (6)
  - Deafness unilateral [Recovering/Resolving]
  - Visual acuity reduced [Recovering/Resolving]
  - Central nervous system lesion [Recovering/Resolving]
  - Encephalopathy [Recovering/Resolving]
  - Hemiparesis [Recovering/Resolving]
  - Concomitant disease aggravated [Recovering/Resolving]
